FAERS Safety Report 4620656-8 (Version None)
Quarter: 2005Q1

REPORT INFORMATION
  Report Type: 
  Country: None (occurrence: None)
  Receive Date: 20050325
  Receipt Date: 20050307
  Transmission Date: 20050727
  Serious: Yes (Hospitalization)
  Sender: FDA-Public Use
  Company Number: A01200501265

PATIENT
  Age: 29 Year
  Sex: Female

DRUGS (9)
  1. STILNOX                          (ZOLPIDEM) [Suspect]
     Indication: CONVULSION
     Dosage: ORAL
     Route: 048
  2. QUETIAPINE FUMARATE [Suspect]
     Dosage: 150 MG ORAL
     Route: 048
     Dates: end: 20030213
  3. VALPROATE SODIUM [Suspect]
     Indication: CONVULSION
     Dosage: 1000 MG ORAL
     Route: 048
     Dates: end: 20030213
  4. ACETAMINOPHEN [Concomitant]
  5. SANDOMIGRAN               (PIZOTIFEN MALEATE) [Concomitant]
  6. MERSYNDOL [Concomitant]
  7. DIAZEPAM [Concomitant]
  8. PHENERGAN [Concomitant]
  9. VENTOLIN [Concomitant]

REACTIONS (3)
  - DRUG INTERACTION [None]
  - NEUROLEPTIC MALIGNANT SYNDROME [None]
  - RHABDOMYOLYSIS [None]
